FAERS Safety Report 6192443-3 (Version None)
Quarter: 2009Q2

REPORT INFORMATION
  Report Type: 
  Country: None (occurrence: None)
  Receive Date: 20090513
  Receipt Date: 20090513
  Transmission Date: 20091009
  Serious: Yes (Other)
  Sender: FDA-Public Use
  Company Number: None

PATIENT
  Age: 41 Year
  Sex: Female
  Weight: 97.5234 kg

DRUGS (13)
  1. TOPIRAMATE [Suspect]
     Dosage: 1X NIGHT ORAL
     Route: 048
     Dates: start: 20090411
  2. TOPIRAMATE [Suspect]
     Dosage: 1X NIGHT ORAL
     Route: 048
     Dates: start: 20090418
  3. PRILOSEC [Concomitant]
  4. BUSPAR [Concomitant]
  5. ANTIVERT [Concomitant]
  6. LEXAPRO [Concomitant]
  7. VALIUM [Concomitant]
  8. PREDNISONE [Concomitant]
  9. SEROQUEL [Concomitant]
  10. LOPID [Concomitant]
  11. TOPAMAX [Concomitant]
  12. COLACE [Concomitant]
  13. MEVACOR [Concomitant]

REACTIONS (4)
  - HYPOAESTHESIA [None]
  - OEDEMA PERIPHERAL [None]
  - PARAESTHESIA [None]
  - PRODUCT QUALITY ISSUE [None]
